FAERS Safety Report 25866352 (Version 1)
Quarter: 2025Q3

REPORT INFORMATION
  Report Type: Spontaneous
  Country: CN (occurrence: CN)
  Receive Date: 20250930
  Receipt Date: 20250930
  Transmission Date: 20251021
  Serious: Yes (Hospitalization)
  Sender: ELI LILLY AND COMPANY
  Company Number: CN-Merck Healthcare KGaA-2025048793

PATIENT
  Age: 65 Year
  Sex: Male
  Weight: 51 kg

DRUGS (2)
  1. ERBITUX [Suspect]
     Active Substance: CETUXIMAB
     Indication: Gingival cancer
     Route: 041
     Dates: start: 20250919, end: 20250919
  2. SODIUM CHLORIDE [Concomitant]
     Active Substance: SODIUM CHLORIDE
     Indication: Gingival cancer
     Route: 041
     Dates: start: 20250919, end: 20250919

REACTIONS (2)
  - Tachypnoea [Unknown]
  - Chills [Unknown]

NARRATIVE: CASE EVENT DATE: 20250919
